FAERS Safety Report 7386875-5 (Version None)
Quarter: 2011Q1

REPORT INFORMATION
  Report Type: 
  Country: None (occurrence: None)
  Receive Date: 20110331
  Receipt Date: 20110330
  Transmission Date: 20110831
  Serious: No
  Sender: FDA-Public Use
  Company Number: US-PFIZER INC-HQWYE210213JUN06

PATIENT
  Age: 89 Year
  Sex: Female
  Weight: 68.2 kg

DRUGS (23)
  1. LASIX [Suspect]
     Dosage: UNKNOWN
     Route: 065
  2. ALDACTONE [Suspect]
     Dosage: UNKNOWN
     Route: 065
  3. ACETAMINOPHEN [Suspect]
     Dosage: UNKNOWN
     Route: 065
  4. PREDNISONE [Suspect]
     Dosage: UNKNOWN
     Route: 065
     Dates: end: 20050325
  5. DUONEB [Suspect]
     Dosage: UNKNOWN
     Route: 065
  6. ANCEF [Suspect]
     Dosage: UNKNOWN
     Route: 065
     Dates: start: 20050101, end: 20050101
  7. PRO-BANTHINE [Suspect]
     Dosage: UNKNOWN
     Route: 065
  8. DARVOCET-N 50 [Suspect]
     Dosage: UNKNOWN
     Route: 065
  9. ADVAIR DISKUS 100/50 [Suspect]
     Dosage: UNKNOWN
     Route: 065
  10. ULTRAM [Suspect]
     Dosage: UNKNOWN
     Route: 065
  11. SLO-MAG [Suspect]
     Dosage: UNKNOWN
     Route: 065
  12. COREG [Suspect]
     Dosage: UNKNOWN
     Route: 065
  13. ASPIRIN [Suspect]
     Dosage: UNKNOWN
     Route: 065
  14. PEPCID [Suspect]
     Dosage: UNKNOWN
     Route: 065
  15. BEXTRA [Suspect]
     Dosage: UNKNOWN
     Route: 065
  16. COZAAR [Suspect]
     Dosage: UNKNOWN
     Route: 065
  17. NORVASC [Suspect]
     Dosage: UNKNOWN
     Route: 065
  18. REMERON [Suspect]
     Indication: DEPRESSION
     Dosage: 15.0 MG, 1X/DAY
     Route: 048
     Dates: end: 20050301
  19. DOCUSATE SODIUM [Suspect]
     Dosage: UNKNOWN
     Route: 065
  20. TRAZODONE [Suspect]
     Dosage: UNKNOWN
     Route: 065
  21. EFFEXOR XR [Suspect]
     Indication: DEPRESSION
     Dosage: 225.0 MG, 1X/DAY
     Route: 048
     Dates: end: 20050301
  22. LOVENOX [Suspect]
     Dosage: UNKNOWN
     Route: 065
  23. KEFLEX [Suspect]
     Dosage: UNKNOWN
     Route: 065
     Dates: start: 20050101, end: 20050101

REACTIONS (1)
  - HYPONATRAEMIA [None]
